FAERS Safety Report 11107818 (Version 2)
Quarter: 2015Q2

REPORT INFORMATION
  Report Type: Report from Study
  Country: BR (occurrence: BR)
  Receive Date: 20150512
  Receipt Date: 20150526
  Transmission Date: 20150821
  Serious: Yes (Hospitalization, Other)
  Sender: FDA-Public Use
  Company Number: PHHY2015BR053765

PATIENT
  Age: 84 Year
  Sex: Female
  Weight: 65 kg

DRUGS (13)
  1. DIOVAN [Suspect]
     Active Substance: VALSARTAN
     Indication: VENTRICULAR HYPERTROPHY
  2. PURAN [Concomitant]
     Active Substance: LEVOTHYROXINE SODIUM
     Indication: THYROID DISORDER
     Dosage: 2 DF, QD (75 MCG)
     Route: 048
  3. ALOIS [Concomitant]
     Active Substance: MEMANTINE
     Indication: NERVOUS SYSTEM DISORDER
     Dosage: 2 DF, QD (10 MG)
     Route: 048
  4. DIOVAN AMLO FIX [Suspect]
     Active Substance: AMLODIPINE\VALSARTAN
     Indication: VENTRICULAR HYPERTROPHY
  5. DIOVAN AMLO FIX [Suspect]
     Active Substance: AMLODIPINE\VALSARTAN
     Indication: CARDIOVASCULAR DISORDER
     Dosage: 1 DF, QD (160/5MG), FOUR YEARS AGO
     Route: 048
  6. DIOVAN [Suspect]
     Active Substance: VALSARTAN
     Indication: CARDIAC VALVE DISEASE
     Dosage: 2 DF, QD (160MG), STOPPED FOUR YEARS AGO
     Route: 048
  7. PROLOPA [Concomitant]
     Active Substance: BENSERAZIDE\LEVODOPA
     Indication: NERVOUS SYSTEM DISORDER
     Dosage: 2 DF, UNK (100MG/25MG)
     Route: 048
  8. ADDERA D3 [Concomitant]
     Active Substance: CHOLECALCIFEROL
     Indication: NERVOUS SYSTEM DISORDER
     Dosage: 1 DF, Q8H (7000 EACH 8 HOURS)
     Route: 048
  9. DIOVAN AMLO FIX [Suspect]
     Active Substance: AMLODIPINE\VALSARTAN
     Indication: CARDIAC VALVE DISEASE
  10. ATENOLOL. [Concomitant]
     Active Substance: ATENOLOL
     Indication: CARDIAC DISORDER
     Dosage: 2 DF, QD (50 MG)
     Route: 048
  11. LOSARTAN [Concomitant]
     Active Substance: LOSARTAN
     Indication: CARDIAC DISORDER
     Dosage: 2 DF, QD (50 MG)
     Route: 048
  12. CARVEDILOL. [Concomitant]
     Active Substance: CARVEDILOL
     Indication: CARDIAC DISORDER
     Dosage: 2 DF, QD (6.25 MG)
     Route: 048
  13. PANTOPRAZOLE [Concomitant]
     Active Substance: PANTOPRAZOLE SODIUM
     Indication: GASTROINTESTINAL DISORDER
     Dosage: 1 DF, QD (20 MG DAILY)
     Route: 048

REACTIONS (3)
  - Asthenia [Unknown]
  - Respiratory disorder [Recovering/Resolving]
  - Cardiovascular disorder [Recovering/Resolving]

NARRATIVE: CASE EVENT DATE: 20150323
